FAERS Safety Report 17353269 (Version 1)
Quarter: 2020Q1

REPORT INFORMATION
  Report Type: Report from Study
  Country: CA (occurrence: CA)
  Receive Date: 20200131
  Receipt Date: 20200131
  Transmission Date: 20200409
  Serious: Yes (Hospitalization)
  Sender: FDA-Public Use
  Company Number: CA-KARYOPHARM THERAPEUTICS, INC.-2017KPT000674

PATIENT
  Age: 66 Year
  Sex: Male
  Weight: 92.5 kg

DRUGS (30)
  1. HYDROMORPHONE [Concomitant]
     Active Substance: HYDROMORPHONE
     Indication: MUSCULOSKELETAL DISCOMFORT
     Dosage: 0.50 - 1.0 MG, QD
     Route: 048
     Dates: start: 20171009
  2. ADVAIR HFA [Concomitant]
     Active Substance: FLUTICASONE PROPIONATE\SALMETEROL XINAFOATE
     Indication: PRODUCT USED FOR UNKNOWN INDICATION
     Dosage: 15 UG, PRN
     Dates: start: 2015, end: 20160301
  3. GABAPENTIN. [Concomitant]
     Active Substance: GABAPENTIN
     Indication: NEURALGIA
     Dosage: 300 MG, PRN
     Route: 048
     Dates: start: 201510
  4. RABEPRAZOLE EC [Concomitant]
     Active Substance: RABEPRAZOLE
     Indication: DYSPHAGIA
     Dosage: 20 MG, BID
     Route: 048
     Dates: start: 2011
  5. AZITHROMYCIN ANHYDROUS. [Concomitant]
     Active Substance: AZITHROMYCIN ANHYDROUS
     Indication: ADVERSE EVENT
     Dosage: 250 MG, BID
     Route: 048
     Dates: start: 20160414, end: 20160417
  6. AZITHROMYCIN ANHYDROUS. [Concomitant]
     Active Substance: AZITHROMYCIN ANHYDROUS
     Indication: ADVERSE EVENT
     Dosage: 500 MG, QD
     Route: 048
     Dates: start: 20160413, end: 20160413
  7. G CSFPCGEN [Concomitant]
     Dosage: 480 MG, TWICE WEEKLY ON MONDAY AND THURSDAY X 8 DOSES
     Route: 058
     Dates: start: 20160609
  8. AZITHROMYCIN ANHYDROUS. [Concomitant]
     Active Substance: AZITHROMYCIN ANHYDROUS
     Indication: ADVERSE EVENT
     Dosage: 250 MG, QD
     Route: 048
     Dates: start: 20160301, end: 20160305
  9. SYMBICORT [Concomitant]
     Active Substance: BUDESONIDE\FORMOTEROL FUMARATE DIHYDRATE
     Indication: ADVERSE EVENT
     Dosage: 2 PUFFS, TID
     Dates: start: 20160301, end: 20160719
  10. ROSUVASTATIN. [Concomitant]
     Active Substance: ROSUVASTATIN
     Indication: HYPERCHOLESTEROLAEMIA
     Dosage: 5 MG, QD
     Dates: start: 2016
  11. VENTOLIN [Concomitant]
     Active Substance: ALBUTEROL SULFATE
     Indication: DYSPNOEA
     Dosage: 2 PURRS, PRN
     Dates: start: 20160719
  12. DEXAMETHASONE. [Suspect]
     Active Substance: DEXAMETHASONE
     Indication: PLASMA CELL MYELOMA
     Dosage: 40 MG, WEEKLY
     Route: 048
     Dates: start: 20160224
  13. VITAMIN D3 [Concomitant]
     Active Substance: CHOLECALCIFEROL
     Indication: PRODUCT USED FOR UNKNOWN INDICATION
     Dosage: 2 TABLETS, QD
     Route: 048
     Dates: start: 201509
  14. NEUPOGEN [Concomitant]
     Active Substance: FILGRASTIM
     Indication: ADVERSE EVENT
     Dosage: 480 UG, TWICE WEEKLY
     Route: 058
     Dates: start: 20160609, end: 20160706
  15. NEUPOGEN [Concomitant]
     Active Substance: FILGRASTIM
     Indication: ADVERSE EVENT
     Dosage: 300 UG, TWICE WEEKLY
     Route: 058
     Dates: start: 20160707
  16. IMODIUM [Concomitant]
     Active Substance: LOPERAMIDE HYDROCHLORIDE
     Dosage: UNK
  17. LORAZEPAM. [Concomitant]
     Active Substance: LORAZEPAM
     Indication: PROPHYLAXIS
     Dosage: 1 MG, PRN
     Route: 048
     Dates: start: 2016
  18. ACETYLSALICYLIC ACID [Concomitant]
     Active Substance: ASPIRIN
     Indication: PROPHYLAXIS
     Dosage: 81 MG, QD
     Route: 048
     Dates: start: 2012
  19. ONDANSETRON [Concomitant]
     Active Substance: ONDANSETRON
     Dosage: 8 MG, TID
     Route: 048
     Dates: start: 20160224
  20. VITAMIN B12 [Concomitant]
     Active Substance: CYANOCOBALAMIN
     Indication: PRODUCT USED FOR UNKNOWN INDICATION
     Dosage: 100 UG, QD
     Route: 048
     Dates: start: 201509
  21. AMLODIPINE [Concomitant]
     Active Substance: AMLODIPINE BESYLATE
     Indication: PRODUCT USED FOR UNKNOWN INDICATION
     Dosage: 5 MG, QD
     Route: 048
     Dates: start: 2001, end: 20160719
  22. SELINEXOR [Suspect]
     Active Substance: SELINEXOR
     Indication: PLASMA CELL MYELOMA
     Dosage: 80 MG, ON DAYS 1, 8, 15, 22 OF EACH 28 DAY CYCLE
     Route: 048
     Dates: start: 20160224
  23. POMALIDOMIDE [Suspect]
     Active Substance: POMALIDOMIDE
     Indication: PLASMA CELL MYELOMA
     Dosage: 4 MG, QD 3 WEEKS ON AND 1 WEEK OFF
     Dates: start: 20190224
  24. LAX-A-DAY [Concomitant]
     Dosage: 17 G, QD
     Route: 048
     Dates: start: 20171009
  25. RAMIPRIL. [Concomitant]
     Active Substance: RAMIPRIL
     Indication: HYPERTENSION
     Dosage: 10 MG, QD
     Route: 048
     Dates: start: 201507, end: 20160719
  26. ATROVENT [Concomitant]
     Active Substance: IPRATROPIUM BROMIDE
     Indication: DYSPNOEA
     Dosage: 20 MCG, PRN
     Dates: start: 20160719
  27. MOXIFLOXACIN. [Concomitant]
     Active Substance: MOXIFLOXACIN
     Indication: ADVERSE EVENT
     Dosage: 400 MG, QD
     Route: 048
     Dates: start: 20160719, end: 20160729
  28. FLOVENT [Concomitant]
     Active Substance: FLUTICASONE PROPIONATE
     Indication: RESPIRATORY DISORDER
     Dosage: 250 UG, BID
     Dates: start: 20170424
  29. IMODIUM [Concomitant]
     Active Substance: LOPERAMIDE HYDROCHLORIDE
     Indication: DIARRHOEA
     Dosage: 4 MG, AFTER FIRST LOOSE STOOL, THEN 2 MG AFTER EACH LOOSE STOOL, NOT TO EXCEED 16 MG Q24H
     Route: 048
     Dates: start: 20170712, end: 20170815
  30. TYLENOL [Concomitant]
     Active Substance: ACETAMINOPHEN
     Indication: DISCOMFORT
     Dosage: 650 MG, PRN
     Route: 048
     Dates: start: 2016

REACTIONS (1)
  - Upper respiratory tract infection [Recovered/Resolved]

NARRATIVE: CASE EVENT DATE: 20171026
